FAERS Safety Report 16625571 (Version 6)
Quarter: 2021Q3

REPORT INFORMATION
  Report Type: Report from Study
  Country: None (occurrence: FR)
  Receive Date: 20190724
  Receipt Date: 20210731
  Transmission Date: 20211014
  Serious: Yes (Death, Hospitalization, Other)
  Sender: FDA-Public Use
  Company Number: FR-ABBVIE-19K-056-2860812-00

PATIENT
  Age: 60 Year
  Sex: Female

DRUGS (11)
  1. BACTRIM [Concomitant]
     Active Substance: SULFAMETHOXAZOLE\TRIMETHOPRIM
     Indication: INFECTION PROPHYLAXIS
     Route: 065
     Dates: start: 2017
  2. VENCLYXTO [Suspect]
     Active Substance: VENETOCLAX
     Route: 048
     Dates: start: 20190923, end: 20191019
  3. ALLOPURINOL. [Concomitant]
     Active Substance: ALLOPURINOL
     Indication: PROPHYLAXIS
     Route: 065
     Dates: start: 2017
  4. LEDERFOLINE [Concomitant]
     Active Substance: LEUCOVORIN CALCIUM
     Indication: PROPHYLAXIS
     Route: 065
     Dates: start: 2017
  5. VENCLYXTO [Suspect]
     Active Substance: VENETOCLAX
     Route: 048
     Dates: start: 20190523, end: 20190529
  6. VALACICLOVIR [Concomitant]
     Active Substance: VALACYCLOVIR HYDROCHLORIDE
     Indication: INFECTION PROPHYLAXIS
     Route: 065
     Dates: start: 2017
  7. VENCLYXTO [Suspect]
     Active Substance: VENETOCLAX
     Route: 048
     Dates: start: 20190509, end: 20190515
  8. VENCLYXTO [Suspect]
     Active Substance: VENETOCLAX
     Route: 048
     Dates: start: 20190907, end: 20190922
  9. VENCLYXTO [Suspect]
     Active Substance: VENETOCLAX
     Route: 048
     Dates: start: 20190530, end: 20190602
  10. VENCLYXTO [Suspect]
     Active Substance: VENETOCLAX
     Indication: CHRONIC LYMPHOCYTIC LEUKAEMIA
     Route: 048
     Dates: start: 20190502, end: 20190508
  11. VENCLYXTO [Suspect]
     Active Substance: VENETOCLAX
     Route: 048
     Dates: start: 20190516, end: 20190522

REACTIONS (17)
  - Spinal pain [Recovered/Resolved]
  - Asthenia [Not Recovered/Not Resolved]
  - Anaemia [Not Recovered/Not Resolved]
  - Hyperthermia [Recovered/Resolved]
  - Back pain [Recovered/Resolved]
  - Oedema peripheral [Recovered/Resolved]
  - Palpitations [Recovered/Resolved with Sequelae]
  - Disease progression [Fatal]
  - Hyperthermia [Recovered/Resolved]
  - Richter^s syndrome [Unknown]
  - Hypocalcaemia [Not Recovered/Not Resolved]
  - Hypercalcaemia [Recovered/Resolved]
  - Confusional state [Not Recovered/Not Resolved]
  - Pain [Recovered/Resolved]
  - Gout [Recovered/Resolved]
  - Hypophosphataemia [Not Recovered/Not Resolved]
  - Hyperthermia [Recovered/Resolved]

NARRATIVE: CASE EVENT DATE: 201905
